FAERS Safety Report 6374083-6 (Version None)
Quarter: 2009Q3

REPORT INFORMATION
  Report Type: 
  Country: None (occurrence: None)
  Receive Date: 20090924
  Receipt Date: 20090629
  Transmission Date: 20100115
  Serious: No
  Sender: FDA-Public Use
  Company Number: US-ASTRAZENECA-2009UW18182

PATIENT
  Age: 50 Year
  Sex: Female
  Weight: 64.9 kg

DRUGS (3)
  1. SEROQUEL XR [Suspect]
     Indication: BIPOLAR DISORDER
     Route: 048
  2. DEPAKOTE [Concomitant]
  3. CLONAZEPAM [Concomitant]

REACTIONS (1)
  - APHTHOUS STOMATITIS [None]
